FAERS Safety Report 8150676-0 (Version None)
Quarter: 2012Q1

REPORT INFORMATION
  Report Type: 
  Country: None (occurrence: None)
  Receive Date: 20120220
  Receipt Date: 20120214
  Transmission Date: 20120608
  Serious: Yes (Death)
  Sender: FDA-Public Use
  Company Number: PHEH2012US003935

PATIENT
  Sex: Male

DRUGS (2)
  1. GLEEVEC [Suspect]
     Indication: ACUTE LYMPHOCYTIC LEUKAEMIA
     Dosage: 600 MG, 2 TABLETS (100MG) AND 1 TABLET (400 MG) DAILY
     Route: 048
     Dates: start: 20111125
  2. GLEEVEC [Suspect]
     Dosage: 600 MG, 2 TABLETS (100MG) AND 1 TABLET (400 MG) DAILY
     Route: 048
     Dates: start: 20111125

REACTIONS (1)
  - DEATH [None]
